FAERS Safety Report 4287780-3 (Version None)
Quarter: 2004Q1

REPORT INFORMATION
  Report Type: 
  Country: None (occurrence: None)
  Receive Date: 20040209
  Receipt Date: 20030923
  Transmission Date: 20041129
  Serious: No
  Sender: FDA-Public Use
  Company Number: US-GLAXOSMITHKLINE-A0427056A

PATIENT
  Age: 47 Year
  Sex: Male

DRUGS (3)
  1. PAXIL [Suspect]
     Dosage: 25MG PER DAY
     Route: 048
  2. VERAPAMIL [Concomitant]
  3. LISINOPRIL [Concomitant]

REACTIONS (5)
  - DRUG INEFFECTIVE [None]
  - DRY MOUTH [None]
  - HUNGER [None]
  - INSOMNIA [None]
  - WEIGHT INCREASED [None]
